FAERS Safety Report 8767479 (Version 1)
Quarter: 2012Q4

REPORT INFORMATION
  Report Type: 
  Country: DE (occurrence: DE)
  Receive Date: 20120903
  Receipt Date: 20120903
  Transmission Date: 20130627
  Serious: Yes (Other)
  Sender: FDA-Public Use
  Company Number: DE-BAYER-2012-089385

PATIENT
  Sex: Female

DRUGS (2)
  1. BETAFERON [Suspect]
  2. TAMOXIFEN [Suspect]

REACTIONS (3)
  - Breast cancer [None]
  - Depression [None]
  - Influenza like illness [None]
